FAERS Safety Report 20834583 (Version 1)
Quarter: 2022Q2

REPORT INFORMATION
  Report Type: Spontaneous
  Country: US (occurrence: None)
  Receive Date: 20220516
  Receipt Date: 20220516
  Transmission Date: 20220721
  Serious: Yes (Hospitalization, Other)
  Sender: FDA-Public Use
  Company Number: 2022A179803

PATIENT
  Age: 21777 Day
  Sex: Female
  Weight: 122.5 kg

DRUGS (1)
  1. FARXIGA [Suspect]
     Active Substance: DAPAGLIFLOZIN PROPANEDIOL
     Indication: Diabetes mellitus
     Route: 048
     Dates: start: 202202

REACTIONS (7)
  - Necrotising fasciitis [Unknown]
  - Blood pressure decreased [Unknown]
  - Product use issue [Unknown]
  - Vaginal disorder [Unknown]
  - Pain [Unknown]
  - Tooth fracture [Unknown]
  - Furuncle [Unknown]

NARRATIVE: CASE EVENT DATE: 20220223
